FAERS Safety Report 6107466-X (Version None)
Quarter: 2009Q1

REPORT INFORMATION
  Report Type: 
  Country: None (occurrence: None)
  Receive Date: 20090309
  Receipt Date: 20090121
  Transmission Date: 20090719
  Serious: Yes (Other)
  Sender: FDA-Public Use
  Company Number: US-PFIZER INC-2008090154

PATIENT
  Sex: Male
  Weight: 63.5 kg

DRUGS (8)
  1. CHANTIX [Suspect]
     Indication: SMOKING CESSATION THERAPY
     Dates: start: 20081013, end: 20081001
  2. ACCUPRIL [Concomitant]
     Indication: HYPERTENSION
  3. DIGOXIN [Concomitant]
     Indication: ATRIAL FIBRILLATION
  4. THYROLAR [Concomitant]
     Indication: THYROID DISORDER
  5. REMERON [Concomitant]
     Indication: POST-TRAUMATIC STRESS DISORDER
  6. KLONOPIN [Concomitant]
     Indication: POST-TRAUMATIC STRESS DISORDER
  7. MELATONIN [Concomitant]
     Indication: INSOMNIA
  8. VALERIAN ROOT [Concomitant]
     Indication: INSOMNIA

REACTIONS (4)
  - DIZZINESS [None]
  - HAEMORRHAGE [None]
  - LOSS OF CONSCIOUSNESS [None]
  - SKIN LACERATION [None]
